FAERS Safety Report 10593967 (Version 3)
Quarter: 2015Q1

REPORT INFORMATION
  Report Type: Spontaneous
  Country: US (occurrence: US)
  Receive Date: 20141119
  Receipt Date: 20150310
  Transmission Date: 20150720
  Serious: Yes (Hospitalization, Other)
  Sender: FDA-Public Use
  Company Number: US-GSKJP-DK201204149002

PATIENT
  Age: 44 Year
  Sex: Female

DRUGS (13)
  1. FOLIC ACID. [Concomitant]
     Active Substance: FOLIC ACID
  2. GEODON [Concomitant]
     Active Substance: ZIPRASIDONE HYDROCHLORIDE\ZIPRASIDONE MESYLATE
  3. MULTIVITAMIN [Concomitant]
     Active Substance: VITAMINS
  4. BACTRIM [Concomitant]
     Active Substance: SULFAMETHOXAZOLE\TRIMETHOPRIM
  5. HALDOL [Concomitant]
     Active Substance: HALOPERIDOL
  6. PAXIL [Concomitant]
     Active Substance: PAROXETINE HYDROCHLORIDE
  7. ACYCLOVIR. [Concomitant]
     Active Substance: ACYCLOVIR
  8. MAGNESIUM [Concomitant]
     Active Substance: MAGNESIUM
  9. NEUPOGEN [Suspect]
     Active Substance: FILGRASTIM
     Indication: PRODUCT USED FOR UNKNOWN INDICATION
     Route: 065
     Dates: start: 20111009, end: 20111016
  10. MELPHALAN [Suspect]
     Active Substance: MELPHALAN
     Indication: BONE MARROW TRANSPLANT
     Dosage: 169 MG, Z
     Route: 042
     Dates: start: 20111001, end: 20111002
  11. KLONOPIN [Concomitant]
     Active Substance: CLONAZEPAM
  12. DEPAKOTE [Concomitant]
     Active Substance: DIVALPROEX SODIUM
  13. LITHIUM [Concomitant]
     Active Substance: LITHIUM CARBONATE

REACTIONS (11)
  - Lobar pneumonia [Unknown]
  - Fluid overload [Recovered/Resolved]
  - Hypernatraemia [Recovered/Resolved]
  - Nausea [Unknown]
  - Diarrhoea [Unknown]
  - Hospitalisation [Unknown]
  - Pyrexia [Unknown]
  - Vomiting [Unknown]
  - Mucosal inflammation [Unknown]
  - International normalised ratio increased [Unknown]
  - Neutropenia [Unknown]

NARRATIVE: CASE EVENT DATE: 20111003
